FAERS Safety Report 9641617 (Version 1)
Quarter: 2013Q4

REPORT INFORMATION
  Report Type: Spontaneous
  Country: US (occurrence: US)
  Receive Date: 20131023
  Receipt Date: 20131023
  Transmission Date: 20140711
  Serious: Yes (Hospitalization, Other)
  Sender: FDA-Public Use
  Company Number: US-GLAXOSMITHKLINE-A1046505A

PATIENT
  Age: 59 Year
  Sex: Female

DRUGS (1)
  1. FLOLAN [Suspect]
     Indication: PULMONARY ARTERIAL HYPERTENSION
     Dosage: 48NGKM CONTINUOUS
     Route: 042
     Dates: start: 19991119

REACTIONS (2)
  - Hospitalisation [Unknown]
  - Thyroidectomy [Unknown]
